FAERS Safety Report 15856018 (Version 1)
Quarter: 2019Q1

REPORT INFORMATION
  Report Type: Spontaneous
  Country: CA (occurrence: CA)
  Receive Date: 20190123
  Receipt Date: 20190123
  Transmission Date: 20190417
  Serious: Yes (Other)
  Sender: FDA-Public Use
  Company Number: CA-BAXTER-2019BAX001319

PATIENT
  Age: 58 Year
  Sex: Female

DRUGS (20)
  1. FORANE [Suspect]
     Active Substance: ISOFLURANE
     Indication: STATUS EPILEPTICUS
     Dosage: ISOFLURANE
     Route: 065
  2. PMS PROPOFOL [Suspect]
     Active Substance: PROPOFOL
     Indication: SEIZURE
     Route: 065
  3. PIPERACILLIN SODIUM W/ TAZOBACTAM SODIUM [Concomitant]
     Indication: PRODUCT USED FOR UNKNOWN INDICATION
     Route: 065
  4. VALPROIC ACID. [Suspect]
     Active Substance: VALPROIC ACID
     Indication: SEIZURE
     Route: 065
  5. PHENOBARBITAL. [Suspect]
     Active Substance: PHENOBARBITAL
     Indication: STATUS EPILEPTICUS
     Route: 065
  6. PHENOBARBITAL. [Suspect]
     Active Substance: PHENOBARBITAL
     Indication: SEIZURE
     Route: 065
  7. KEPPRA [Suspect]
     Active Substance: LEVETIRACETAM
     Indication: STATUS EPILEPTICUS
     Route: 065
  8. VALPROIC ACID. [Suspect]
     Active Substance: VALPROIC ACID
     Indication: STATUS EPILEPTICUS
     Route: 065
  9. FORANE [Suspect]
     Active Substance: ISOFLURANE
     Indication: SEIZURE
     Route: 065
  10. PMS PROPOFOL [Suspect]
     Active Substance: PROPOFOL
     Indication: STATUS EPILEPTICUS
     Route: 065
  11. MIDAZOLAM HYDROCHLORIDE. [Suspect]
     Active Substance: MIDAZOLAM HYDROCHLORIDE
     Indication: SEIZURE
     Route: 065
  12. PHENYTOIN. [Suspect]
     Active Substance: PHENYTOIN
     Indication: STATUS EPILEPTICUS
     Route: 065
  13. FORANE [Suspect]
     Active Substance: ISOFLURANE
     Dosage: ISOFLURANE
     Route: 065
  14. KEPPRA [Suspect]
     Active Substance: LEVETIRACETAM
     Indication: OFF LABEL USE
     Dosage: DOSAGE FORM: TABLET
     Route: 065
  15. KETAMINE HYDROCHLORIDE. [Suspect]
     Active Substance: KETAMINE HYDROCHLORIDE
     Indication: STATUS EPILEPTICUS
     Route: 065
  16. METHYLPREDNISOLONE SODIUM SUCCINATE. [Suspect]
     Active Substance: METHYLPREDNISOLONE SODIUM SUCCINATE
     Indication: STATUS EPILEPTICUS
     Route: 042
  17. MIDAZOLAM HYDROCHLORIDE. [Suspect]
     Active Substance: MIDAZOLAM HYDROCHLORIDE
     Indication: STATUS EPILEPTICUS
     Route: 065
  18. KEPPRA [Suspect]
     Active Substance: LEVETIRACETAM
     Indication: SEIZURE
     Route: 065
  19. KETAMINE HYDROCHLORIDE. [Suspect]
     Active Substance: KETAMINE HYDROCHLORIDE
     Indication: SEIZURE
     Route: 065
  20. PHENYTOIN. [Suspect]
     Active Substance: PHENYTOIN
     Indication: SEIZURE
     Route: 065

REACTIONS (14)
  - Cardiomegaly [Unknown]
  - Intra-abdominal pressure increased [Unknown]
  - Vomiting [Unknown]
  - Hypotension [Unknown]
  - Drug ineffective [Unknown]
  - Abdominal distension [Unknown]
  - Intestinal ischaemia [Unknown]
  - Off label use [Unknown]
  - Systemic inflammatory response syndrome [Unknown]
  - Abscess [Unknown]
  - Left ventricular hypertrophy [Unknown]
  - Perforation [Unknown]
  - Pneumatosis [Unknown]
  - Necrosis ischaemic [Unknown]
